FAERS Safety Report 8008727-X (Version None)
Quarter: 2011Q4

REPORT INFORMATION
  Report Type: 
  Country: None (occurrence: None)
  Receive Date: 20111227
  Receipt Date: 20111221
  Transmission Date: 20120403
  Serious: Yes (Death)
  Sender: FDA-Public Use
  Company Number: US-CELGENEUS-163-21880-11122974

PATIENT
  Sex: Male

DRUGS (4)
  1. REVLIMID [Suspect]
     Dosage: 5 MILLIGRAM
     Route: 048
     Dates: start: 20070723
  2. LASIX [Concomitant]
     Route: 065
  3. DIGOXIN [Concomitant]
     Route: 065
  4. LISINOPRIL [Concomitant]
     Route: 065

REACTIONS (1)
  - DEATH [None]
